FAERS Safety Report 21065000 (Version 1)
Quarter: 2022Q3

REPORT INFORMATION
  Report Type: Spontaneous
  Country: GB (occurrence: GB)
  Receive Date: 20220711
  Receipt Date: 20220711
  Transmission Date: 20221027
  Serious: Yes (Disabling, Other)
  Sender: FDA-Public Use
  Company Number: GB-MHRA-MED-202207081639434300-NJTYK

PATIENT

DRUGS (1)
  1. INCRUSE ELLIPTA [Suspect]
     Active Substance: UMECLIDINIUM BROMIDE
     Indication: Chronic obstructive pulmonary disease
     Dosage: UNK
     Dates: end: 20220626

REACTIONS (1)
  - Bronchospasm paradoxical [Recovered/Resolved with Sequelae]

NARRATIVE: CASE EVENT DATE: 20220601
